FAERS Safety Report 16084334 (Version 1)
Quarter: 2019Q1

REPORT INFORMATION
  Report Type: Spontaneous
  Country: IT (occurrence: IT)
  Receive Date: 20190318
  Receipt Date: 20190318
  Transmission Date: 20190418
  Serious: Yes (Other)
  Sender: FDA-Public Use
  Company Number: IT-JNJFOC-20190311527

PATIENT
  Age: 63 Year
  Sex: Male

DRUGS (2)
  1. DARZALEX [Suspect]
     Active Substance: DARATUMUMAB
     Indication: PLASMA CELL MYELOMA
     Route: 042
     Dates: start: 20181024, end: 20181228
  2. VELCADE [Suspect]
     Active Substance: BORTEZOMIB
     Indication: PLASMA CELL MYELOMA
     Dosage: 3.5 MG POWDER FOR SOLUTION FOR INJECTION
     Route: 058
     Dates: start: 20181024, end: 20190107

REACTIONS (2)
  - Neuropathy peripheral [Unknown]
  - Constipation [Unknown]

NARRATIVE: CASE EVENT DATE: 20190117
